FAERS Safety Report 19596628 (Version 1)
Quarter: 2021Q3

REPORT INFORMATION
  Report Type: Spontaneous
  Country: DE (occurrence: DE)
  Receive Date: 20210722
  Receipt Date: 20210722
  Transmission Date: 20211014
  Serious: Yes (Other)
  Sender: FDA-Public Use
  Company Number: DE-MYLANLABS-2021M1043310

PATIENT
  Age: 8 Year
  Sex: Female

DRUGS (3)
  1. CCNU [Suspect]
     Active Substance: LOMUSTINE
     Indication: TERATOMA
     Dosage: UNK
  2. METHOTREXATE. [Suspect]
     Active Substance: METHOTREXATE
     Indication: TERATOMA
     Dosage: UNK
     Route: 037
  3. VM 26 [Suspect]
     Active Substance: TENIPOSIDE
     Indication: TERATOMA
     Dosage: UNK

REACTIONS (2)
  - Liver disorder [Unknown]
  - Off label use [Unknown]
